FAERS Safety Report 11534751 (Version 17)
Quarter: 2017Q3

REPORT INFORMATION
  Report Type: Report from Study
  Country: CA (occurrence: CA)
  Receive Date: 20150922
  Receipt Date: 20170825
  Transmission Date: 20171127
  Serious: Yes (Other)
  Sender: FDA-Public Use
  Company Number: CA-ROCHE-1352088

PATIENT
  Age: 68 Year
  Sex: Male
  Weight: 99 kg

DRUGS (6)
  1. ACTEMRA [Suspect]
     Active Substance: TOCILIZUMAB
     Indication: TEMPORAL ARTERITIS
     Route: 042
     Dates: start: 20140123, end: 20140325
  2. ACTEMRA [Suspect]
     Active Substance: TOCILIZUMAB
     Route: 042
     Dates: start: 20150910
  3. ACTEMRA [Suspect]
     Active Substance: TOCILIZUMAB
     Route: 042
     Dates: start: 20160621
  4. ACTEMRA [Suspect]
     Active Substance: TOCILIZUMAB
     Route: 042
     Dates: start: 20170803
  5. NAPROSYN [Suspect]
     Active Substance: NAPROXEN
     Indication: PRODUCT USED FOR UNKNOWN INDICATION
     Route: 065
  6. PREDNISONE. [Concomitant]
     Active Substance: PREDNISONE
     Route: 065

REACTIONS (18)
  - Hepatic cyst [Unknown]
  - Abdominal pain [Unknown]
  - Nasopharyngitis [Recovered/Resolved]
  - Musculoskeletal pain [Not Recovered/Not Resolved]
  - Blood pressure diastolic decreased [Unknown]
  - Influenza [Not Recovered/Not Resolved]
  - Blood pressure increased [Unknown]
  - Urinary tract obstruction [Unknown]
  - Heart rate decreased [Unknown]
  - Arthritis [Unknown]
  - Arthritis [Not Recovered/Not Resolved]
  - Intentional product use issue [Unknown]
  - Pancreatic cyst [Unknown]
  - Back pain [Unknown]
  - Off label use [Unknown]
  - Bladder cancer [Unknown]
  - Nasopharyngitis [Not Recovered/Not Resolved]
  - Drug hypersensitivity [Unknown]

NARRATIVE: CASE EVENT DATE: 201404
